FAERS Safety Report 4360664-8 (Version None)
Quarter: 2004Q2

REPORT INFORMATION
  Report Type: 
  Country: None (occurrence: None)
  Receive Date: 20040514
  Receipt Date: 20040506
  Transmission Date: 20050107
  Serious: Yes (Other)
  Sender: FDA-Public Use
  Company Number: 2004212229US

PATIENT
  Age: 28 Year
  Sex: Female

DRUGS (2)
  1. CELEBREX [Suspect]
     Indication: KNEE OPERATION
     Dosage: 200 MG, BID
     Dates: start: 20031101
  2. DILANTIN [Concomitant]

REACTIONS (1)
  - CONVULSION [None]
